FAERS Safety Report 9662877 (Version 2)
Quarter: 2013Q4

REPORT INFORMATION
  Report Type: Spontaneous
  Country: US (occurrence: US)
  Receive Date: 20131031
  Receipt Date: 20131031
  Transmission Date: 20140711
  Serious: No
  Sender: FDA-Public Use
  Company Number: US-PURDUE-USA-2010-0056787

PATIENT
  Sex: Female

DRUGS (4)
  1. OXYCONTIN (NDA 22-272) [Suspect]
     Indication: PAIN
     Dosage: 240 MG, Q8H
     Dates: start: 20100808
  2. OXYCONTIN (NDA 22-272) [Suspect]
     Dosage: 560 MG, QID
  3. OXYCONTIN TABLETS [Suspect]
     Indication: PAIN
     Dosage: 480 MG, Q8H
  4. TUMS                               /00751519/ [Concomitant]
     Indication: ABDOMINAL PAIN UPPER
     Dosage: UNK

REACTIONS (9)
  - Liver tenderness [Not Recovered/Not Resolved]
  - Oropharyngeal pain [Not Recovered/Not Resolved]
  - Breakthrough pain [Not Recovered/Not Resolved]
  - Foreign body [Not Recovered/Not Resolved]
  - Vomiting [Not Recovered/Not Resolved]
  - Retching [Not Recovered/Not Resolved]
  - Abdominal pain upper [Not Recovered/Not Resolved]
  - Therapeutic response delayed [Not Recovered/Not Resolved]
  - Inadequate analgesia [Not Recovered/Not Resolved]
